FAERS Safety Report 12782127 (Version 1)
Quarter: 2016Q3

REPORT INFORMATION
  Report Type: Spontaneous
  Country: US (occurrence: US)
  Receive Date: 20160926
  Receipt Date: 20160926
  Transmission Date: 20161109
  Serious: Yes (Hospitalization)
  Sender: FDA-Public Use
  Company Number: None

PATIENT
  Age: 30 Year
  Sex: Female

DRUGS (12)
  1. FERROUS GLUCONATE [Concomitant]
     Active Substance: FERROUS GLUCONATE
  2. FOLIC ACID. [Concomitant]
     Active Substance: FOLIC ACID
  3. LORATADINE. [Concomitant]
     Active Substance: LORATADINE
  4. SOD CHL [Concomitant]
  5. TRINESSA [Concomitant]
     Active Substance: ETHINYL ESTRADIOL\NORGESTIMATE
  6. IBUPROFEN. [Concomitant]
     Active Substance: IBUPROFEN
  7. TAMIFLU [Concomitant]
     Active Substance: OSELTAMIVIR PHOSPHATE
  8. VENTOLIN [Concomitant]
     Active Substance: ALBUTEROL SULFATE
  9. OMEPRAZOLE. [Concomitant]
     Active Substance: OMEPRAZOLE
  10. AMOXICILLIN. [Concomitant]
     Active Substance: AMOXICILLIN
  11. BETHKIS [Suspect]
     Active Substance: TOBRAMYCIN
     Indication: BRONCHIECTASIS
     Dates: start: 20151221
  12. PREDNISONE. [Concomitant]
     Active Substance: PREDNISONE

REACTIONS (6)
  - Dyspnoea [None]
  - Chest pain [None]
  - Heart rate increased [None]
  - Pain [None]
  - Discomfort [None]
  - Wheezing [None]

NARRATIVE: CASE EVENT DATE: 201609
